FAERS Safety Report 20470565 (Version 1)
Quarter: 2022Q1

REPORT INFORMATION
  Report Type: Spontaneous
  Country: US (occurrence: US)
  Receive Date: 20220214
  Receipt Date: 20220214
  Transmission Date: 20220423
  Serious: No
  Sender: FDA-Public Use
  Company Number: US-LUPIN PHARMACEUTICALS INC.-2022-01972

PATIENT
  Age: 5 Decade
  Sex: Female

DRUGS (8)
  1. MINOCYCLINE [Suspect]
     Active Substance: MINOCYCLINE HYDROCHLORIDE
     Indication: Cutaneous sarcoidosis
     Dosage: UNK
     Route: 065
     Dates: start: 2012
  2. MINOCYCLINE [Suspect]
     Active Substance: MINOCYCLINE HYDROCHLORIDE
     Indication: Neuralgia
     Dosage: 100 MILLIGRAM, BID
     Route: 065
     Dates: start: 201407, end: 2019
  3. MINOCYCLINE [Suspect]
     Active Substance: MINOCYCLINE HYDROCHLORIDE
     Indication: Muscle spasticity
  4. CEPHALEXIN [Suspect]
     Active Substance: CEPHALEXIN
     Indication: Neuralgia
     Dosage: 500 MILLIGRAM, BID
     Route: 065
     Dates: start: 2019
  5. CEPHALEXIN [Suspect]
     Active Substance: CEPHALEXIN
     Indication: Muscle spasticity
  6. METHOTREXATE [Concomitant]
     Active Substance: METHOTREXATE
     Indication: Neurosarcoidosis
     Dosage: UNK
     Route: 065
  7. METHADONE [Concomitant]
     Active Substance: METHADONE HYDROCHLORIDE
     Indication: Restless legs syndrome
     Dosage: UNK, QD (AT BEDTIME)
     Route: 065
  8. INFLIXIMAB [Concomitant]
     Active Substance: INFLIXIMAB
     Indication: Neurosarcoidosis
     Dosage: UNK
     Route: 065

REACTIONS (2)
  - Skin hyperpigmentation [Recovered/Resolved]
  - Off label use [Unknown]

NARRATIVE: CASE EVENT DATE: 20190101
